FAERS Safety Report 10204611 (Version 1)
Quarter: 2014Q2

REPORT INFORMATION
  Report Type: Spontaneous
  Country: US (occurrence: US)
  Receive Date: 20140529
  Receipt Date: 20140529
  Transmission Date: 20141212
  Serious: No
  Sender: FDA-Public Use
  Company Number: US-ASTRAZENECA-2014SE34637

PATIENT
  Age: 65 Year
  Sex: Male

DRUGS (19)
  1. ATACAND [Suspect]
     Route: 048
  2. CRESTOR [Suspect]
     Route: 048
  3. VIAGRA [Concomitant]
     Indication: ERECTILE DYSFUNCTION
  4. VITAMIN C [Concomitant]
  5. VITAMIN D3 [Concomitant]
  6. ASPIRIN [Concomitant]
  7. EFUDEX [Concomitant]
  8. OMEGA 3 FATTY ACID [Concomitant]
  9. DERMOTIC OIL [Concomitant]
  10. CHLORTHALIDONE [Concomitant]
     Indication: HYPERTENSION
  11. ALLOPURINOL [Concomitant]
     Indication: GOUT
  12. LOSARTAN [Concomitant]
     Indication: HYPERTENSION
  13. ALEVE CAPLET SODIUM [Concomitant]
  14. CHROMIUM PICOLINATE [Concomitant]
  15. FLUTICASONE PROPIONATE [Concomitant]
     Indication: HYPERSENSITIVITY
  16. METRONIDAZOLE [Concomitant]
     Indication: ROSACEA
  17. SAW PALMETTO [Concomitant]
  18. ENALAPRIL [Concomitant]
  19. LIPITOR [Concomitant]

REACTIONS (2)
  - Myalgia [Unknown]
  - Cough [Unknown]
